FAERS Safety Report 10031330 (Version 1)
Quarter: 2014Q1

REPORT INFORMATION
  Report Type: Spontaneous
  Country: US (occurrence: None)
  Receive Date: 20140306
  Receipt Date: 20140306
  Transmission Date: 20141002
  Serious: Yes (Hospitalization)
  Sender: FDA-Public Use
  Company Number: 163-21880-12061044

PATIENT
  Age: 75 Year
  Sex: Male
  Weight: 78.93 kg

DRUGS (8)
  1. REVLIMID (LENALIDOMIDE) (25 MILLIGRAM, CAPSULES) [Suspect]
     Indication: PLASMA CELL MYELOMA
     Dosage: 25 MG, 1 IN 1 D, PO
     Route: 048
     Dates: start: 20120206
  2. DEXAMETHASONE (DEXAMETHASONE) [Concomitant]
  3. ZOFRAN (ONDANSETRON HYDROCHLORIDE) [Concomitant]
  4. HYDROCODONE/APAP (VICODIN) [Concomitant]
  5. LYRICA (PREGABALIN) [Concomitant]
  6. VITAMIN D (ERGOCALCIFEROL) [Concomitant]
  7. MUCINEX (GUAIFENESIN) [Concomitant]
  8. ANTIHYPERTENSIVES (ANTIHYPERTENSIVES) [Concomitant]

REACTIONS (5)
  - Hypotension [None]
  - Loss of consciousness [None]
  - Blood potassium decreased [None]
  - Blood pressure inadequately controlled [None]
  - Laboratory test abnormal [None]
